FAERS Safety Report 11440956 (Version 1)
Quarter: 2015Q3

REPORT INFORMATION
  Report Type: Spontaneous
  Country: US (occurrence: US)
  Receive Date: 20150821
  Receipt Date: 20150821
  Transmission Date: 20151125
  Serious: No
  Sender: FDA-Public Use
  Company Number: US-ELI_LILLY_AND_COMPANY-US200711005644

PATIENT
  Age: 64 Year
  Sex: Male

DRUGS (6)
  1. LEXAPRO [Concomitant]
     Active Substance: ESCITALOPRAM OXALATE
  2. CYMBALTA [Suspect]
     Active Substance: DULOXETINE HYDROCHLORIDE
     Indication: DEPRESSION
     Dosage: 60 MG, DAILY (1/D)
     Dates: start: 20071121
  3. ENALAPRIL [Concomitant]
     Active Substance: ENALAPRIL
  4. CYMBALTA [Suspect]
     Active Substance: DULOXETINE HYDROCHLORIDE
  5. HYDROCHLOROTHIAZID [Concomitant]
     Active Substance: HYDROCHLOROTHIAZIDE
  6. L-TRYPTOPHAN [Concomitant]
     Active Substance: TRYPTOPHAN

REACTIONS (7)
  - Aggression [Not Recovered/Not Resolved]
  - Middle insomnia [Not Recovered/Not Resolved]
  - Sleep disorder [Not Recovered/Not Resolved]
  - Pressure of speech [Not Recovered/Not Resolved]
  - Insomnia [Not Recovered/Not Resolved]
  - Logorrhoea [Not Recovered/Not Resolved]
  - Elevated mood [Not Recovered/Not Resolved]

NARRATIVE: CASE EVENT DATE: 200711
